FAERS Safety Report 12245936 (Version 1)
Quarter: 2016Q2

REPORT INFORMATION
  Report Type: Spontaneous
  Country: US (occurrence: US)
  Receive Date: 20160407
  Receipt Date: 20160407
  Transmission Date: 20160815
  Serious: Yes (Hospitalization, Other)
  Sender: FDA-Public Use
  Company Number: US-ASTRAZENECA-2016SE35494

PATIENT
  Age: 51 Year
  Sex: Female
  Weight: 38.1 kg

DRUGS (10)
  1. PHENOBARBITAL. [Concomitant]
     Active Substance: PHENOBARBITAL
     Indication: EPILEPSY
  2. NEXIUM [Suspect]
     Active Substance: ESOMEPRAZOLE MAGNESIUM
     Indication: ULCER
     Route: 048
     Dates: start: 1997
  3. NASAL SPRAY [Concomitant]
     Active Substance: UNSPECIFIED INGREDIENT
     Indication: MULTIPLE ALLERGIES
     Dosage: TWO TIMES A DAY
     Route: 055
  4. VITAMIN B12 [Concomitant]
     Active Substance: CYANOCOBALAMIN
     Indication: ANAEMIA
     Route: 030
  5. OMEPRAZOLE. [Suspect]
     Active Substance: OMEPRAZOLE
     Indication: ULCER
     Route: 048
  6. CALCITONIN [Concomitant]
     Active Substance: CALCITONIN
     Dosage: DAILY
     Route: 055
  7. INFED [Concomitant]
     Active Substance: IRON DEXTRAN
     Indication: ANAEMIA
     Dosage: AS REQUIRED
     Route: 030
  8. VITAMIN D [Concomitant]
     Active Substance: CHOLECALCIFEROL
     Indication: OSTEOPOROSIS
  9. NEXIUM [Suspect]
     Active Substance: ESOMEPRAZOLE MAGNESIUM
     Indication: ULCER
     Route: 048
  10. NEXIUM [Suspect]
     Active Substance: ESOMEPRAZOLE MAGNESIUM
     Indication: ULCER
     Route: 048

REACTIONS (13)
  - Impaired gastric emptying [Unknown]
  - Dyspepsia [Unknown]
  - Pernicious anaemia [Unknown]
  - Gastric disorder [Unknown]
  - Pancreatitis [Unknown]
  - Hip fracture [Unknown]
  - Vomiting [Unknown]
  - Pelvic fracture [Unknown]
  - Drug ineffective [Recovered/Resolved]
  - Fall [Unknown]
  - Rib fracture [Unknown]
  - Osteoporosis [Unknown]
  - Malabsorption [Unknown]

NARRATIVE: CASE EVENT DATE: 1999
